FAERS Safety Report 18573615 (Version 1)
Quarter: 2020Q4

REPORT INFORMATION
  Report Type: Spontaneous
  Country: US (occurrence: US)
  Receive Date: 20201203
  Receipt Date: 20201203
  Transmission Date: 20210114
  Serious: Yes (Hospitalization)
  Sender: FDA-Public Use
  Company Number: US-SA-2020SA192187

PATIENT

DRUGS (3)
  1. ALDURAZYME [Suspect]
     Active Substance: LARONIDASE
     Dosage: 0.05 MG/KG
     Route: 037
     Dates: start: 20170929, end: 20171110
  2. ALDURAZYME [Suspect]
     Active Substance: LARONIDASE
     Dosage: UNK
     Route: 041
  3. ALDURAZYME [Suspect]
     Active Substance: LARONIDASE
     Indication: MUCOPOLYSACCHARIDOSIS I
     Dosage: 0.05 MG/KG
     Route: 037
     Dates: start: 20170811, end: 2017

REACTIONS (8)
  - Product use issue [Unknown]
  - Headache [Recovering/Resolving]
  - Fatigue [Recovering/Resolving]
  - Cerebral ventricle dilatation [Recovering/Resolving]
  - Nausea [Recovering/Resolving]
  - Retching [Recovering/Resolving]
  - Cerebral disorder [Recovering/Resolving]
  - Shunt malfunction [Recovering/Resolving]

NARRATIVE: CASE EVENT DATE: 2017
